FAERS Safety Report 9825815 (Version 1)
Quarter: 2014Q1

REPORT INFORMATION
  Report Type: Spontaneous
  Country: US (occurrence: None)
  Receive Date: 20140115
  Receipt Date: 20140115
  Transmission Date: 20141002
  Serious: Yes (Other)
  Sender: FDA-Public Use
  Company Number: 001654214A

PATIENT
  Age: 69 Year
  Sex: Female

DRUGS (7)
  1. MEANINGFUL BEAUTY ANTIOXIDANT DAY CREME WITH SPF 20 [Suspect]
     Dosage: DERMAL
     Dates: start: 20131212, end: 20131216
  2. SKIN BRIGHTENING DECOLLETE AND NECK TREATMENT SPF 15 [Suspect]
     Dosage: DERMAL
     Dates: start: 20131212, end: 20131216
  3. CEPHALEXIN [Concomitant]
  4. CRESTOR [Concomitant]
  5. BENADRYL [Concomitant]
  6. BABY ASPIRIN [Concomitant]
  7. MULTIVITAMINS [Concomitant]

REACTIONS (4)
  - Pruritus [None]
  - Swelling face [None]
  - Wound [None]
  - Drug interaction [None]
